FAERS Safety Report 5471622-4 (Version None)
Quarter: 2007Q3

REPORT INFORMATION
  Report Type: 
  Country: None (occurrence: None)
  Receive Date: 20070928
  Receipt Date: 20070212
  Transmission Date: 20080115
  Serious: No
  Sender: FDA-Public Use
  Company Number: US-BRISTOL-MYERS SQUIBB COMPANY-13676481

PATIENT
  Age: 80 Year
  Sex: Female
  Weight: 83 kg

DRUGS (10)
  1. DEFINITY [Suspect]
     Indication: STRESS ECHOCARDIOGRAM
     Dosage: .5CC GIVEN AT 2 SEPERATE INTERVALS
  2. DOBUTAMINE HCL [Concomitant]
  3. LIPITOR [Concomitant]
  4. ASPIRIN [Concomitant]
  5. METFORMIN [Concomitant]
  6. RESTASIS [Concomitant]
  7. LOPRESSOR [Concomitant]
  8. DARVON [Concomitant]
  9. PLAVIX [Concomitant]
  10. NITROGLYCERIN [Concomitant]
     Route: 060

REACTIONS (2)
  - CHEST PAIN [None]
  - PAIN [None]
